FAERS Safety Report 5003044-4 (Version None)
Quarter: 2006Q2

REPORT INFORMATION
  Report Type: 
  Country: None (occurrence: None)
  Receive Date: 20060516
  Receipt Date: 20050829
  Transmission Date: 20061013
  Serious: Yes (Hospitalization)
  Sender: FDA-Public Use
  Company Number: US-MERCK-0508USA05103

PATIENT
  Age: 48 Year
  Sex: Male
  Weight: 100 kg

DRUGS (24)
  1. VIOXX [Suspect]
     Indication: ARTHRITIS
     Route: 048
     Dates: start: 20030701, end: 20040101
  2. VIOXX [Suspect]
     Indication: PAIN
     Route: 048
     Dates: start: 20030701, end: 20040101
  3. IBUPROFEN [Concomitant]
     Route: 065
  4. ASPIRIN [Concomitant]
     Route: 065
  5. VALIUM [Concomitant]
     Route: 065
  6. PRILOSEC [Concomitant]
     Route: 065
  7. UNIVASC [Concomitant]
     Route: 065
  8. ALLEGRA [Concomitant]
     Route: 065
  9. MECLIZINE [Concomitant]
     Route: 065
  10. ALBUTEROL [Concomitant]
     Route: 065
  11. DARVOCET-N 100 [Concomitant]
     Route: 065
  12. DARVOCET-N 100 [Concomitant]
     Route: 048
     Dates: start: 20040801
  13. ADVAIR DISKUS 100/50 [Concomitant]
     Route: 065
  14. SINGULAIR [Concomitant]
     Route: 048
  15. AVANDIA [Concomitant]
     Route: 065
  16. AVANDIA [Concomitant]
     Route: 048
     Dates: start: 20040801
  17. LOVASTATIN [Concomitant]
     Route: 065
  18. CARDURA [Concomitant]
     Route: 065
  19. REGLAN [Concomitant]
     Route: 065
  20. MEVACOR [Concomitant]
     Route: 048
  21. NITROGLYCERIN [Concomitant]
     Route: 065
  22. PLAVIX [Concomitant]
     Route: 048
     Dates: start: 20040801
  23. METOPROLOL [Concomitant]
     Route: 048
     Dates: start: 20040801
  24. MECLIZINE [Concomitant]
     Route: 048
     Dates: start: 20040801

REACTIONS (9)
  - ANGINA UNSTABLE [None]
  - ANXIETY [None]
  - ARTERIAL OCCLUSIVE DISEASE [None]
  - CHEST PAIN [None]
  - CORONARY ARTERY STENOSIS [None]
  - HYPERCHOLESTEROLAEMIA [None]
  - INJURY [None]
  - OBESITY [None]
  - OSTEOARTHRITIS [None]
